FAERS Safety Report 9227935 (Version 1)
Quarter: 2013Q2

REPORT INFORMATION
  Report Type: Spontaneous
  Country: US (occurrence: None)
  Receive Date: 20130411
  Receipt Date: 20130411
  Transmission Date: 20140414
  Serious: Yes (Other)
  Sender: FDA-Public Use
  Company Number: None

PATIENT
  Age: 47 Year
  Sex: Female
  Weight: 72.58 kg

DRUGS (1)
  1. FLUCONAZOLE [Suspect]
     Indication: VULVOVAGINAL MYCOTIC INFECTION
     Dosage: 150 MG TABLET  1 X A MONTH  PO?5+YEARS
     Route: 048

REACTIONS (5)
  - Lip swelling [None]
  - Swollen tongue [None]
  - Oedema mouth [None]
  - Rash [None]
  - Pruritus [None]
